FAERS Safety Report 17188445 (Version 3)
Quarter: 2020Q4

REPORT INFORMATION
  Report Type: Report from Study
  Country: US (occurrence: US)
  Receive Date: 20191222
  Receipt Date: 20201029
  Transmission Date: 20210113
  Serious: Yes (Hospitalization)
  Sender: FDA-Public Use
  Company Number: US-EISAI MEDICAL RESEARCH-EC-2019-067076

PATIENT
  Age: 16 Year
  Sex: Male
  Weight: 55 kg

DRUGS (2)
  1. LENVATINIB [Suspect]
     Active Substance: LENVATINIB
     Indication: EWING^S SARCOMA
     Route: 048
     Dates: start: 20191009, end: 20191204
  2. EVEROLIMUS. [Suspect]
     Active Substance: EVEROLIMUS
     Indication: EWING^S SARCOMA
     Route: 048
     Dates: start: 20191009, end: 20191204

REACTIONS (1)
  - Haemothorax [Recovered/Resolved]

NARRATIVE: CASE EVENT DATE: 20191206
